FAERS Safety Report 10839174 (Version 1)
Quarter: 2015Q1

REPORT INFORMATION
  Report Type: Spontaneous
  Country: US (occurrence: US)
  Receive Date: 20150220
  Receipt Date: 20150220
  Transmission Date: 20150721
  Serious: No
  Sender: FDA-Public Use
  Company Number: US-ABBVIE-14P-163-1253580-00

PATIENT
  Age: 22 Year
  Sex: Female
  Weight: 64.92 kg

DRUGS (1)
  1. HUMIRA [Suspect]
     Active Substance: ADALIMUMAB
     Indication: PRODUCT USED FOR UNKNOWN INDICATION
     Route: 058
     Dates: start: 20140611, end: 20140611

REACTIONS (5)
  - Vomiting [Recovered/Resolved]
  - Pain in extremity [Recovering/Resolving]
  - Hyperhidrosis [Recovering/Resolving]
  - Dysphagia [Recovered/Resolved]
  - Type IV hypersensitivity reaction [Unknown]

NARRATIVE: CASE EVENT DATE: 20140619
